FAERS Safety Report 14617151 (Version 3)
Quarter: 2019Q3

REPORT INFORMATION
  Report Type: Report from Study
  Country: GR (occurrence: GR)
  Receive Date: 20180309
  Receipt Date: 20190911
  Transmission Date: 20191004
  Serious: Yes (Other)
  Sender: FDA-Public Use
  Company Number: GR-CELGENEUS-GRC-20180208231

PATIENT
  Age: 26 Year
  Sex: Male
  Weight: 80.5 kg

DRUGS (1)
  1. OTEZLA [Suspect]
     Active Substance: APREMILAST
     Indication: PSORIASIS
     Dosage: 60 MILLIGRAM
     Route: 065
     Dates: start: 20171024, end: 20180222

REACTIONS (1)
  - Weight increased [Recovered/Resolved]

NARRATIVE: CASE EVENT DATE: 20180222
